FAERS Safety Report 6850561-8 (Version None)
Quarter: 2010Q3

REPORT INFORMATION
  Report Type: 
  Country: None (occurrence: None)
  Receive Date: 20100716
  Receipt Date: 20071018
  Transmission Date: 20110219
  Serious: No
  Sender: FDA-Public Use
  Company Number: US-PFIZER INC-2007088296

PATIENT
  Sex: Female
  Weight: 81.6 kg

DRUGS (11)
  1. CHANTIX [Suspect]
     Indication: SMOKING CESSATION THERAPY
     Route: 048
     Dates: start: 20071011
  2. CELEBREX [Concomitant]
     Indication: FIBROMYALGIA
     Route: 048
  3. CELEBREX [Concomitant]
     Indication: ARTHRITIS
  4. ULTRAM [Concomitant]
     Route: 048
  5. FLONASE [Concomitant]
     Route: 048
  6. PREMPRO [Concomitant]
     Route: 048
  7. SERZONE [Concomitant]
     Route: 048
  8. KLONOPIN [Concomitant]
     Indication: ANXIETY
     Route: 048
  9. ZANTAC [Concomitant]
     Route: 048
  10. CLARITIN [Concomitant]
     Route: 048
  11. CALCIUM WITH VITAMIN D [Concomitant]
     Route: 048

REACTIONS (1)
  - HEADACHE [None]
